FAERS Safety Report 4720313-3 (Version None)
Quarter: 2005Q3

REPORT INFORMATION
  Report Type: 
  Country: None (occurrence: None)
  Receive Date: 20050721
  Receipt Date: 20050404
  Transmission Date: 20060218
  Serious: Yes (Life-Threatening, Hospitalization, Disabling, Other)
  Sender: FDA-Public Use
  Company Number: US-MERCK-0504USA00414

PATIENT
  Age: 85 Year
  Sex: Male
  Weight: 73 kg

DRUGS (5)
  1. VIOXX [Suspect]
     Indication: SHOULDER OPERATION
     Route: 048
     Dates: start: 19990101, end: 20030523
  2. VIOXX [Suspect]
     Route: 048
     Dates: start: 19991011, end: 19990101
  3. VIOXX [Suspect]
     Indication: OSTEOARTHRITIS
     Route: 048
     Dates: start: 19990101, end: 20030523
  4. VIOXX [Suspect]
     Route: 048
     Dates: start: 19991011, end: 19990101
  5. [THERAPY UNSPECIFIED] [Concomitant]
     Indication: BLOOD PRESSURE
     Route: 065

REACTIONS (4)
  - ACUTE CORONARY SYNDROME [None]
  - CEREBROVASCULAR ACCIDENT [None]
  - HYPERTENSION [None]
  - MYOCARDIAL INFARCTION [None]
